FAERS Safety Report 5095895-5 (Version None)
Quarter: 2006Q3

REPORT INFORMATION
  Report Type: 
  Country: None (occurrence: None)
  Receive Date: 20060727
  Receipt Date: 20060621
  Transmission Date: 20061208
  Serious: No
  Sender: FDA-Public Use
  Company Number: FACT0600285

PATIENT
  Age: 45 Year
  Sex: Female
  Weight: 45.4 kg

DRUGS (2)
  1. FACTIVE [Suspect]
     Indication: RESPIRATORY TRACT INFECTION BACTERIAL
     Dosage: 320 MG, QD, ORAL
     Route: 048
     Dates: start: 20060605, end: 20060607
  2. CERON DM() [Suspect]
     Indication: PNEUMONIA
     Dosage: PRN, ORAL
     Route: 048
     Dates: start: 20060605, end: 20060607

REACTIONS (2)
  - FATIGUE [None]
  - PAIN IN EXTREMITY [None]
